FAERS Safety Report 19059167 (Version 1)
Quarter: 2021Q1

REPORT INFORMATION
  Report Type: Report from Study
  Country: US (occurrence: US)
  Receive Date: 20210326
  Receipt Date: 20210326
  Transmission Date: 20210420
  Serious: Yes (Other)
  Sender: FDA-Public Use
  Company Number: US-ASTRAZENECA-2021A182864

PATIENT
  Sex: Female
  Weight: 70.8 kg

DRUGS (2)
  1. LYNPARZA [Suspect]
     Active Substance: OLAPARIB
     Indication: METASTATIC LYMPHOMA
     Route: 048
     Dates: start: 202011, end: 202102
  2. LYNPARZA [Suspect]
     Active Substance: OLAPARIB
     Indication: PANCREATIC CARCINOMA
     Route: 048
     Dates: start: 202011, end: 202102

REACTIONS (3)
  - Brain neoplasm [Unknown]
  - Tumour marker increased [Unknown]
  - Drug ineffective [Unknown]
